FAERS Safety Report 13072102 (Version 2)
Quarter: 2017Q1

REPORT INFORMATION
  Report Type: Spontaneous
  Country: JP (occurrence: JP)
  Receive Date: 20161229
  Receipt Date: 20170106
  Transmission Date: 20170428
  Serious: Yes (Other)
  Sender: FDA-Public Use
  Company Number: JP-ASTELLAS-2016US051035

PATIENT
  Age: 55 Year
  Sex: Female

DRUGS (5)
  1. GASTER [Suspect]
     Active Substance: FAMOTIDINE
     Dosage: UNK, TWICE DAILY
     Route: 065
  2. AMBISOME [Suspect]
     Active Substance: AMPHOTERICIN B
     Indication: PERITONITIS
     Dosage: UNK UNK, UNKNOWN FREQ.
     Route: 041
  3. GASTER [Suspect]
     Active Substance: FAMOTIDINE
     Indication: PRODUCT USED FOR UNKNOWN INDICATION
     Dosage: UNK, UNKNOWN FREQ.
     Route: 065
     Dates: start: 20161201, end: 20161201
  4. MEROPENEM TRIHYDRATE [Concomitant]
     Active Substance: MEROPENEM
     Indication: BLOOD BETA-D-GLUCAN INCREASED
     Dosage: UNK, UNKNOWN FREQ.
     Route: 041
  5. GASTER [Suspect]
     Active Substance: FAMOTIDINE
     Dosage: UNK, UNKNOWN FREQ.
     Route: 065
     Dates: start: 20161212, end: 20161212

REACTIONS (2)
  - Pyrexia [Not Recovered/Not Resolved]
  - Blood beta-D-glucan increased [Not Recovered/Not Resolved]
